FAERS Safety Report 5833497-0 (Version None)
Quarter: 2008Q3

REPORT INFORMATION
  Report Type: 
  Country: None (occurrence: None)
  Receive Date: 20080805
  Receipt Date: 20080731
  Transmission Date: 20090109
  Serious: Yes (Hospitalization)
  Sender: FDA-Public Use
  Company Number: US-ASTRAZENECA-2008UW14982

PATIENT
  Age: 65 Year
  Sex: Female
  Weight: 45.4 kg

DRUGS (5)
  1. SEROQUEL [Suspect]
     Route: 048
     Dates: start: 20070801
  2. SEROQUEL [Suspect]
     Route: 048
  3. VYTORIN [Concomitant]
  4. FOSAMAX [Concomitant]
  5. ESTRACE [Concomitant]

REACTIONS (3)
  - FEELING ABNORMAL [None]
  - INCOHERENT [None]
  - SOMNOLENCE [None]
